FAERS Safety Report 9185729 (Version 1)
Quarter: 2012Q4

REPORT INFORMATION
  Report Type: 
  Country: US (occurrence: US)
  Receive Date: 20121101
  Receipt Date: 20121101
  Transmission Date: 20130627
  Serious: No
  Sender: FDA-Public Use
  Company Number: US-009507513-1210USA009552

PATIENT
  Age: 7 Month
  Sex: Female

DRUGS (8)
  1. DEXAMETHASONE [Suspect]
     Indication: NERVOUS SYSTEM DISORDER
     Dosage: 10 mg/m2, qd
     Route: 048
  2. DEXAMETHASONE [Suspect]
     Dosage: 1 mg/m2, qd
     Route: 048
  3. DEXAMETHASONE [Suspect]
     Dosage: 10 mg/m2, qd
     Route: 048
  4. DEXAMETHASONE [Suspect]
     Dosage: 0.5 mg/m2, qod
     Route: 048
  5. DEXAMETHASONE [Suspect]
     Dosage: 10 mg/m2, qd
     Route: 048
  6. DEXAMETHASONE [Suspect]
     Dosage: 1 mg/m2, qod
     Route: 048
  7. DEXAMETHASONE [Suspect]
     Dosage: 10 mg/m2, qd
     Route: 048
  8. DEXAMETHASONE [Suspect]
     Dosage: 0.5 mg/m2, qod
     Route: 048

REACTIONS (1)
  - Steroid withdrawal syndrome [Unknown]
